FAERS Safety Report 8933980 (Version 2)
Quarter: 2012Q4

REPORT INFORMATION
  Report Type: 
  Country: US (occurrence: US)
  Receive Date: 20121129
  Receipt Date: 20121217
  Transmission Date: 20130627
  Serious: Yes (Other)
  Sender: FDA-Public Use
  Company Number: US-PFIZER INC-2012298225

PATIENT
  Age: 63 Year
  Sex: Male
  Weight: 90.7 kg

DRUGS (4)
  1. CADUET [Suspect]
     Indication: HIGH CHOLESTEROL
     Dosage: 10/20 mg, 1x/day
     Route: 048
     Dates: end: 201210
  2. CADUET [Suspect]
     Indication: BLOOD PRESSURE HIGH
  3. ACCUPRIL [Suspect]
     Indication: BLOOD PRESSURE HIGH
     Dosage: 40 mg, 1x/day
     Route: 048
     Dates: end: 201211
  4. METFORMIN [Concomitant]
     Indication: DIABETES
     Dosage: UNK

REACTIONS (1)
  - Blood pressure increased [Unknown]
